FAERS Safety Report 22953436 (Version 3)
Quarter: 2023Q4

REPORT INFORMATION
  Report Type: Spontaneous
  Country: JP (occurrence: JP)
  Receive Date: 20230918
  Receipt Date: 20231012
  Transmission Date: 20240109
  Serious: Yes (Hospitalization)
  Sender: FDA-Public Use
  Company Number: JP-CHUGAI-2023020671AA

PATIENT
  Age: 73 Year
  Sex: Male
  Weight: 61.2 kg

DRUGS (11)
  1. AVASTIN [Suspect]
     Active Substance: BEVACIZUMAB
     Indication: Hepatocellular carcinoma
     Route: 041
     Dates: start: 20221020, end: 20230117
  2. AVASTIN [Suspect]
     Active Substance: BEVACIZUMAB
     Route: 041
     Dates: start: 20230314, end: 20230515
  3. AVASTIN [Suspect]
     Active Substance: BEVACIZUMAB
     Dosage: 910 MILLIGRAM, SINGLE
     Route: 041
     Dates: start: 20230814, end: 20230814
  4. TECENTRIQ [Suspect]
     Active Substance: ATEZOLIZUMAB
     Indication: Hepatocellular carcinoma
     Route: 041
  5. ASPIRIN [Suspect]
     Active Substance: ASPIRIN
     Indication: Product used for unknown indication
     Dosage: 100 MILLIGRAM, QD,AFTER BREAKFAST
     Route: 048
     Dates: start: 20220512, end: 20230607
  6. ELIQUIS [Suspect]
     Active Substance: APIXABAN
     Indication: Product used for unknown indication
     Dosage: 5 MILLIGRAM, BID,AFTER BREAKFAST AND DINNER
     Route: 048
     Dates: start: 20220311
  7. AMLODIPINE BESYLATE [Concomitant]
     Active Substance: AMLODIPINE BESYLATE
     Dosage: UNK
     Route: 065
     Dates: start: 20220511
  8. LANSOPRAZOLE [Concomitant]
     Active Substance: LANSOPRAZOLE
     Dosage: UNK
     Route: 065
     Dates: start: 20220310
  9. AMINO ACIDS, SOURCE UNSPECIFIED [Concomitant]
     Active Substance: AMINO ACIDS, SOURCE UNSPECIFIED
     Dosage: UNK
     Route: 065
     Dates: start: 20200819
  10. FUROSEMIDE [Concomitant]
     Active Substance: FUROSEMIDE
     Dosage: UNK
     Route: 065
     Dates: start: 20200819
  11. URSODIOL [Concomitant]
     Active Substance: URSODIOL
     Dosage: UNK
     Route: 065

REACTIONS (2)
  - Anaemia [Recovered/Resolved]
  - Gastrointestinal polyp haemorrhage [Recovered/Resolved]

NARRATIVE: CASE EVENT DATE: 20230606
